FAERS Safety Report 4540528-7 (Version None)
Quarter: 2004Q4

REPORT INFORMATION
  Report Type: 
  Country: None (occurrence: None)
  Receive Date: 20041228
  Receipt Date: 20041228
  Transmission Date: 20050328
  Serious: Yes (Hospitalization)
  Sender: FDA-Public Use
  Company Number: None

PATIENT
  Age: 63 Year
  Sex: Male
  Weight: 84.369 kg

DRUGS (2)
  1. OXCARBAZEPINE  600MG [Suspect]
     Indication: BIPOLAR DISORDER
     Dosage: 600MG  QAM AND QPM ORAL
     Route: 048
     Dates: start: 20040908, end: 20041020
  2. OMEPRAZOLE [Suspect]
     Indication: GASTROOESOPHAGEAL REFLUX DISEASE
     Dosage: 20MG  QD ORAL
     Route: 048
     Dates: start: 20040113, end: 20041227

REACTIONS (5)
  - FALL [None]
  - HEAD INJURY [None]
  - HYPONATRAEMIA [None]
  - LOSS OF CONSCIOUSNESS [None]
  - MENTAL STATUS CHANGES [None]
